FAERS Safety Report 17215079 (Version 1)
Quarter: 2019Q4

REPORT INFORMATION
  Report Type: Spontaneous
  Country: JP (occurrence: JP)
  Receive Date: 20191230
  Receipt Date: 20191230
  Transmission Date: 20200122
  Serious: Yes (Death)
  Sender: FDA-Public Use
  Company Number: JP-EISAI MEDICAL RESEARCH-EC-2019-051999

PATIENT
  Age: 84 Year
  Sex: Female

DRUGS (2)
  1. LENVIMA [Suspect]
     Active Substance: LENVATINIB
     Indication: POORLY DIFFERENTIATED THYROID CARCINOMA
     Dosage: 24 MG DAILY, 2 WEEKS ON, 2 WEEKS OFF
     Route: 048
     Dates: start: 20180705
  2. LENVIMA [Suspect]
     Active Substance: LENVATINIB
     Dosage: 4 MG DAILY, SUSPENSION FOR 1 WEEK AND RESUMPTION WERE REPEATED
     Route: 048
     Dates: start: 2019

REACTIONS (3)
  - Platelet count decreased [Recovering/Resolving]
  - Malignant neoplasm progression [Fatal]
  - Proteinuria [Unknown]

NARRATIVE: CASE EVENT DATE: 201907
